FAERS Safety Report 25234336 (Version 5)
Quarter: 2025Q4

REPORT INFORMATION
  Report Type: Spontaneous
  Country: US (occurrence: US)
  Receive Date: 20250424
  Receipt Date: 20251007
  Transmission Date: 20260118
  Serious: Yes (Hospitalization, Other)
  Sender: JOHNSON AND JOHNSON
  Company Number: US-JNJFOC-20250424666

PATIENT
  Age: 74 Year
  Sex: Male

DRUGS (8)
  1. XARELTO [Suspect]
     Active Substance: RIVAROXABAN
     Indication: Thrombosis prophylaxis
     Dosage: SERIAL:100062291430?GTIN: 00350458579307
     Route: 048
  2. XARELTO [Suspect]
     Active Substance: RIVAROXABAN
     Route: 048
  3. ANDROID [Concomitant]
     Active Substance: METHYLTESTOSTERONE
     Indication: Product used for unknown indication
     Dosage: 1.62%, 4 PUMPS
  4. CHOLECALCIFEROL [Concomitant]
     Active Substance: CHOLECALCIFEROL
     Indication: Product used for unknown indication
     Dosage: 2 TAB
  5. CHOLECALCIFEROL [Concomitant]
     Active Substance: CHOLECALCIFEROL
     Dosage: 2 TAB
  6. CHOLECALCIFEROL [Concomitant]
     Active Substance: CHOLECALCIFEROL
     Dosage: 2 TAB
  7. MAGNESIUM GLYCINATE [Concomitant]
     Active Substance: MAGNESIUM GLYCINATE
     Indication: Product used for unknown indication
  8. MAGNESIUM SULFATE [Concomitant]
     Active Substance: MAGNESIUM SULFATE
     Indication: Product used for unknown indication

REACTIONS (9)
  - Neoplasm malignant [Unknown]
  - Muscle rupture [Unknown]
  - Thrombosis [Unknown]
  - Spinal stenosis [Unknown]
  - Urinary tract infection [Unknown]
  - Haematuria [Unknown]
  - Back pain [Unknown]
  - Product physical issue [Unknown]
  - Visual impairment [Unknown]

NARRATIVE: CASE EVENT DATE: 20250606
